FAERS Safety Report 8337274-0 (Version None)
Quarter: 2012Q2

REPORT INFORMATION
  Report Type: 
  Country: None (occurrence: None)
  Receive Date: 20120504
  Receipt Date: 20120430
  Transmission Date: 20120825
  Serious: Yes (Life-Threatening, Other)
  Sender: FDA-Public Use
  Company Number: US-ASTRAZENECA-2012SE28187

PATIENT
  Age: 68 Year
  Sex: Female

DRUGS (3)
  1. NEXIUM [Suspect]
     Dosage: GENERIC
     Route: 048
  2. NEXIUM [Suspect]
     Route: 048
  3. DULCOLAX [Concomitant]

REACTIONS (6)
  - FREQUENT BOWEL MOVEMENTS [None]
  - APPARENT DEATH [None]
  - FALL [None]
  - VOLVULUS [None]
  - MALAISE [None]
  - DRUG INEFFECTIVE [None]
